FAERS Safety Report 7880533 (Version 2)
Quarter: 2014Q4

REPORT INFORMATION
  Report Type: Spontaneous
  Country: NL (occurrence: NL)
  Receive Date: 20110331
  Receipt Date: 20141030
  Transmission Date: 20150529
  Serious: Yes (Death, Life-Threatening, Hospitalization, Disabling, Other)
  Sender: FDA-Public Use
  Company Number: NL-TEVA-273397ISR

PATIENT
  Age: 54 Year
  Sex: Male

DRUGS (1)
  1. VINCRISTINE [Suspect]
     Active Substance: VINCRISTINE
     Indication: CHRONIC LYMPHOCYTIC LEUKAEMIA
     Dates: start: 20011201

REACTIONS (2)
  - Nervous system disorder [Fatal]
  - Multiple system atrophy [Fatal]

NARRATIVE: CASE EVENT DATE: 20011201
